FAERS Safety Report 26218377 (Version 1)
Quarter: 2025Q4

REPORT INFORMATION
  Report Type: Spontaneous
  Country: JP (occurrence: JP)
  Receive Date: 20251231
  Receipt Date: 20251231
  Transmission Date: 20260118
  Serious: Yes (Hospitalization)
  Sender: PFIZER
  Company Number: JP-PFIZER INC-PV202500151152

PATIENT
  Age: 10 Decade
  Sex: Male

DRUGS (1)
  1. TAFAMIDIS [Suspect]
     Active Substance: TAFAMIDIS
     Dosage: UNK
     Route: 048

REACTIONS (2)
  - Cardiac failure [Unknown]
  - Therapeutic response decreased [Unknown]
